FAERS Safety Report 6108302-8 (Version None)
Quarter: 2009Q1

REPORT INFORMATION
  Report Type: 
  Country: None (occurrence: None)
  Receive Date: 20090309
  Receipt Date: 20090302
  Transmission Date: 20090719
  Serious: Yes (Other)
  Sender: FDA-Public Use
  Company Number: FR-ALLERGAN-0902788US

PATIENT
  Sex: Female

DRUGS (2)
  1. VISTABEL [Suspect]
     Indication: SKIN WRINKLING
     Dosage: UNK, SINGLE
     Route: 030
  2. VISTABEL [Suspect]

REACTIONS (5)
  - EYELID OEDEMA [None]
  - FOLLICULITIS [None]
  - HERPES VIRUS INFECTION [None]
  - HYPERSENSITIVITY [None]
  - RASH [None]
